FAERS Safety Report 8543478-4 (Version None)
Quarter: 2012Q3

REPORT INFORMATION
  Report Type: 
  Country: None (occurrence: None)
  Receive Date: 20120727
  Receipt Date: 20120725
  Transmission Date: 20120928
  Serious: Yes (Hospitalization, Other)
  Sender: FDA-Public Use
  Company Number: PHEH2012US009404

PATIENT
  Sex: Female

DRUGS (2)
  1. ZOMETA [Suspect]
     Indication: METASTASES TO BONE
     Dosage: 1 DF, EVERY 4 WEEKS
     Route: 042
     Dates: start: 20101110
  2. ZOMETA [Suspect]
     Indication: BREAST CANCER

REACTIONS (7)
  - BLOOD URINE PRESENT [None]
  - ATRIAL FIBRILLATION [None]
  - ARTHRALGIA [None]
  - RECTAL HAEMORRHAGE [None]
  - GAIT DISTURBANCE [None]
  - INFECTION [None]
  - INCONTINENCE [None]
